FAERS Safety Report 25427950 (Version 2)
Quarter: 2025Q3

REPORT INFORMATION
  Report Type: Spontaneous
  Country: JP (occurrence: JP)
  Receive Date: 20250612
  Receipt Date: 20250917
  Transmission Date: 20251020
  Serious: Yes (Hospitalization)
  Sender: PFIZER
  Company Number: JP-PFIZER INC-PV202500069245

PATIENT
  Age: 72 Year
  Sex: Female
  Weight: 54.5 kg

DRUGS (15)
  1. OXALIPLATIN [Suspect]
     Active Substance: OXALIPLATIN
     Indication: Gastric cancer
     Dosage: 190 MG, 1X/DAY
     Route: 042
     Dates: start: 20240619
  2. OXALIPLATIN [Suspect]
     Active Substance: OXALIPLATIN
     Dosage: 190 MG, 1X/DAY, 3RD COURSE
     Route: 042
     Dates: start: 20240731
  3. OXALIPLATIN [Suspect]
     Active Substance: OXALIPLATIN
     Dosage: 190 MG, 1X/DAY, 4TH COURSE
     Route: 042
     Dates: start: 20240904
  4. OXALIPLATIN [Suspect]
     Active Substance: OXALIPLATIN
     Dosage: 190 MG, 1X/DAY, 5TH COURSE
     Route: 042
     Dates: start: 20240925, end: 20240925
  5. ZOLBETUXIMAB [Suspect]
     Active Substance: ZOLBETUXIMAB
     Indication: Gastric cancer
     Dosage: 910 MG, 1X/DAY
     Route: 042
     Dates: start: 20240619
  6. ZOLBETUXIMAB [Suspect]
     Active Substance: ZOLBETUXIMAB
     Dosage: 910 MG, 1X/DAY, 3RD COURSE
     Route: 042
     Dates: start: 20240731
  7. ZOLBETUXIMAB [Suspect]
     Active Substance: ZOLBETUXIMAB
     Dosage: 910 MG, 1X/DAY, 4TH COURSE
     Route: 042
     Dates: start: 20240904
  8. ZOLBETUXIMAB [Suspect]
     Active Substance: ZOLBETUXIMAB
     Dosage: 910 MG, 1X/DAY, 5TH COURSE
     Route: 042
     Dates: start: 20240925
  9. CAPECITABINE [Suspect]
     Active Substance: CAPECITABINE
     Indication: Gastric cancer
     Dosage: 1500 MG, 2X/DAY
     Route: 048
     Dates: start: 20240619
  10. CAPECITABINE [Suspect]
     Active Substance: CAPECITABINE
     Dosage: 1500 MG, 2X/DAY, 3RD COURSE
     Route: 048
     Dates: start: 20240731
  11. CAPECITABINE [Suspect]
     Active Substance: CAPECITABINE
     Dosage: 1500 MG, 2X/DAY, 4TH COURSE
     Route: 048
     Dates: start: 20240904
  12. CAPECITABINE [Suspect]
     Active Substance: CAPECITABINE
     Dosage: 1500 MG, 2X/DAY, 5TH COURSE
     Route: 048
     Dates: start: 20240925
  13. ASPIRIN\LANSOPRAZOLE [Concomitant]
     Active Substance: ASPIRIN\LANSOPRAZOLE
     Route: 048
  14. AMLODIPINE BESYLATE [Concomitant]
     Active Substance: AMLODIPINE BESYLATE
     Route: 048
  15. MAGNESIUM OXIDE [Concomitant]
     Active Substance: MAGNESIUM OXIDE
     Route: 048

REACTIONS (2)
  - Pulmonary embolism [Recovering/Resolving]
  - Lacunar infarction [Recovering/Resolving]

NARRATIVE: CASE EVENT DATE: 20240808
